FAERS Safety Report 5028482-5 (Version None)
Quarter: 2006Q2

REPORT INFORMATION
  Report Type: 
  Country: None (occurrence: None)
  Receive Date: 20060617
  Receipt Date: 20060602
  Transmission Date: 20061013
  Serious: Yes (Hospitalization)
  Sender: FDA-Public Use
  Company Number: FR-GLAXOSMITHKLINE-B0427636A

PATIENT
  Age: 26 Year
  Sex: Male

DRUGS (3)
  1. CEPAZINE [Suspect]
     Dosage: 1UNIT TWICE PER DAY
     Route: 048
     Dates: start: 20060221, end: 20060224
  2. DOLIPRANE [Concomitant]
     Dosage: 1UNIT SINGLE DOSE
     Route: 048
     Dates: start: 20060221
  3. SOLUPRED [Concomitant]
     Dosage: 1TAB SINGLE DOSE
     Route: 048
     Dates: start: 20060220

REACTIONS (9)
  - CONJUNCTIVITIS [None]
  - COUGH [None]
  - ERYTHEMA MULTIFORME [None]
  - GENITAL EROSION [None]
  - MUCOSAL EROSION [None]
  - ORAL SOFT TISSUE DISORDER [None]
  - PYREXIA [None]
  - RASH [None]
  - RASH GENERALISED [None]
